FAERS Safety Report 8044429-1 (Version None)
Quarter: 2012Q1

REPORT INFORMATION
  Report Type: 
  Country: None (occurrence: None)
  Receive Date: 20120113
  Receipt Date: 20120103
  Transmission Date: 20120608
  Serious: Yes (Death)
  Sender: FDA-Public Use
  Company Number: US-SHIONOGI, INC-2012000062

PATIENT
  Age: 45 Year
  Sex: Female

DRUGS (10)
  1. TOPIRAMATE [Suspect]
     Dosage: UNK
  2. TEMAZEPAM [Suspect]
     Dosage: UNK
  3. MONTELUKAST [Suspect]
     Dosage: UNK
  4. SPIRONOLACTONE [Suspect]
     Dosage: UNK
  5. GABAPENTIN [Suspect]
     Dosage: UNK
  6. PHENOBARBITAL TAB [Suspect]
     Dosage: UNK
  7. DIAZEPAM [Suspect]
     Dosage: UNK
  8. CLONAZEPAM [Suspect]
     Dosage: UNK
  9. PROGESTERONE [Suspect]
     Dosage: UNK
  10. NAPROXEN [Suspect]
     Dosage: UNK

REACTIONS (1)
  - COMPLETED SUICIDE [None]
